FAERS Safety Report 5748875-8 (Version None)
Quarter: 2008Q2

REPORT INFORMATION
  Report Type: 
  Country: None (occurrence: None)
  Receive Date: 20080522
  Receipt Date: 20080513
  Transmission Date: 20081010
  Serious: Yes (Other)
  Sender: FDA-Public Use
  Company Number: 2008US001295

PATIENT

DRUGS (28)
  1. PROGRAF [Suspect]
     Indication: RENAL TRANSPLANT
     Dosage: 4 MG, BID,; 200000 IU, OTHER; 19000 IU, OTHER
     Route: 050
     Dates: start: 20051207, end: 20060404
  2. PROGRAF [Suspect]
     Indication: RENAL TRANSPLANT
     Dosage: 4 MG, BID,; 200000 IU, OTHER; 19000 IU, OTHER
     Route: 050
     Dates: start: 20060404, end: 20070807
  3. PROGRAF [Suspect]
     Indication: RENAL TRANSPLANT
     Dosage: 4 MG, BID,; 200000 IU, OTHER; 19000 IU, OTHER
     Route: 050
     Dates: start: 20000228
  4. PROGRAF [Suspect]
     Indication: RENAL TRANSPLANT
     Dosage: 4 MG, BID,; 200000 IU, OTHER; 19000 IU, OTHER
     Route: 050
     Dates: start: 20080124
  5. PROCRIT [Suspect]
     Indication: ANAEMIA
     Dosage: 20000 IU, 3XWEEKLY, SUBCUTANEOUS
     Route: 058
     Dates: start: 20070807
  6. QUINIDINE (QUINIDINE BISULFATE) [Concomitant]
  7. ZOLPIDEM TARTRATE (ZOLPIDEM TATRATE) [Concomitant]
  8. AZATHIOPRINE [Suspect]
     Indication: DRUG USE FOR UNKNOWN INDICATION
     Dates: start: 20000118
  9. PREDNISOLONE ACETATE [Concomitant]
  10. ZOPICLONE (ZOPICLONE) [Concomitant]
  11. PRAVASTATIN [Concomitant]
  12. CITALOPRAM HYDROBROMIDE [Concomitant]
  13. FINASTERIDE [Concomitant]
  14. ESTRADIOL (ESTRADIOL VALERATE) [Concomitant]
  15. CLONIDINE [Concomitant]
  16. AMOXICILLIN TRIHYDRATE [Concomitant]
  17. DYAZIDE [Concomitant]
  18. BACLOFEN [Concomitant]
  19. MEDROXYPROGESTERONE [Concomitant]
  20. ASPIRIN [Concomitant]
  21. PENTOXIFYLLINE [Concomitant]
  22. BECLOMETHASONE DIPROPIONATE [Concomitant]
  23. CHLORPHENIRAMINE MALEATE [Concomitant]
  24. PROCATEROL (PROCATEROL) [Concomitant]
  25. COZAAR [Concomitant]
  26. NITROGLYCERIN [Concomitant]
  27. FLUTICASONE PROPIONATE [Concomitant]
  28. BENZONATATE [Concomitant]

REACTIONS (17)
  - ANTIBODY TEST ABNORMAL [None]
  - ASTHMA [None]
  - CAROTID ARTERY STENOSIS [None]
  - DEPRESSION [None]
  - DIPLOPIA [None]
  - DRUG HYPERSENSITIVITY [None]
  - DRUG LEVEL ABOVE THERAPEUTIC [None]
  - FALSE NEGATIVE LABORATORY RESULT [None]
  - GASTROOESOPHAGEAL REFLUX DISEASE [None]
  - INSOMNIA [None]
  - MACULAR SCAR [None]
  - NEPHROGENIC ANAEMIA [None]
  - NEPHROPATHY [None]
  - OBESITY [None]
  - RENAL FAILURE CHRONIC [None]
  - THERAPEUTIC RESPONSE DECREASED [None]
  - TRANSIENT ISCHAEMIC ATTACK [None]
